FAERS Safety Report 18676393 (Version 1)
Quarter: 2020Q4

REPORT INFORMATION
  Report Type: Spontaneous
  Country: US (occurrence: US)
  Receive Date: 20201229
  Receipt Date: 20201229
  Transmission Date: 20210114
  Serious: Yes (Hospitalization, Disabling, Other)
  Sender: FDA-Public Use
  Company Number: None

PATIENT
  Age: 39 Year
  Sex: Female
  Weight: 61.9 kg

DRUGS (7)
  1. BARICITINIB. [Suspect]
     Active Substance: BARICITINIB
     Indication: COVID-19
     Route: 048
     Dates: start: 20201217, end: 20201223
  2. DEXAMETHASONE. [Concomitant]
     Active Substance: DEXAMETHASONE
     Dates: start: 20201211, end: 20201216
  3. REMDESIVIR. [Concomitant]
     Active Substance: REMDESIVIR
     Dates: start: 20201211, end: 20201214
  4. PIPERCILLIN-TAZOBACTAM [Concomitant]
     Active Substance: PIPERACILLIN SODIUM\TAZOBACTAM SODIUM
     Dates: start: 20201211, end: 20201221
  5. MICAFUNGIN. [Concomitant]
     Active Substance: MICAFUNGIN SODIUM
     Dates: start: 20201221, end: 20201221
  6. BARICITINIB. [Suspect]
     Active Substance: BARICITINIB
     Indication: COVID-19
     Route: 048
     Dates: start: 20201211, end: 20201216
  7. MEROPENEM. [Concomitant]
     Active Substance: MEROPENEM
     Dates: start: 20201221

REACTIONS (4)
  - Respiratory failure [None]
  - Acute kidney injury [None]
  - Infection [None]
  - Hypotension [None]

NARRATIVE: CASE EVENT DATE: 20201224
